FAERS Safety Report 6855970-9 (Version None)
Quarter: 2010Q3

REPORT INFORMATION
  Report Type: 
  Country: None (occurrence: None)
  Receive Date: 20100716
  Receipt Date: 20100716
  Transmission Date: 20110219
  Serious: No
  Sender: FDA-Public Use
  Company Number: None

PATIENT
  Sex: Male
  Weight: 71.6683 kg

DRUGS (2)
  1. FLECAINIDE ACETATE [Suspect]
     Indication: CARDIAC DISORDER
     Dosage: 100 MG 2 DAILY
     Dates: start: 20100501
  2. FLECAINIDE ACETATE [Suspect]
     Indication: CARDIAC DISORDER
     Dosage: 100 MG 2 DAILY
     Dates: start: 20100601

REACTIONS (2)
  - DEPRESSION [None]
  - VISION BLURRED [None]
